FAERS Safety Report 9169719 (Version 2)
Quarter: 2013Q1

REPORT INFORMATION
  Report Type: Spontaneous
  Country: ID (occurrence: ID)
  Receive Date: 20130318
  Receipt Date: 20130325
  Transmission Date: 20140127
  Serious: Yes (Death, Hospitalization)
  Sender: FDA-Public Use
  Company Number: PHHY2013ID026113

PATIENT
  Age: 42 Year
  Sex: Male

DRUGS (5)
  1. DOXORUBICIN [Suspect]
     Indication: LYMPHOMA
  2. PREDNISOLONE [Suspect]
     Indication: LYMPHOMA
  3. VINCRISTINE [Suspect]
     Indication: LYMPHOMA
  4. CYCLOPHOSPHAMIDE [Suspect]
     Indication: LYMPHOMA
  5. RITUXIMAB [Suspect]
     Indication: LYMPHOMA

REACTIONS (20)
  - Acute hepatic failure [Fatal]
  - Nausea [Fatal]
  - Vomiting [Fatal]
  - Pyrexia [Fatal]
  - Jaundice [Fatal]
  - Yellow skin [Fatal]
  - Chromaturia [Fatal]
  - Tachycardia [Fatal]
  - Tachypnoea [Fatal]
  - Oedema [Fatal]
  - Hepatomegaly [Fatal]
  - Hyperbilirubinaemia [Fatal]
  - Haematemesis [Fatal]
  - Prothrombin time prolonged [Fatal]
  - Hypoalbuminaemia [Fatal]
  - Loss of consciousness [Fatal]
  - Ocular icterus [Fatal]
  - Delirium [Fatal]
  - Hepatic encephalopathy [Fatal]
  - Hepatitis B [Fatal]
